FAERS Safety Report 14710005 (Version 2)
Quarter: 2018Q2

REPORT INFORMATION
  Report Type: Report from Study
  Country: IT (occurrence: IT)
  Receive Date: 20180403
  Receipt Date: 20180404
  Transmission Date: 20180711
  Serious: Yes (Death)
  Sender: FDA-Public Use
  Company Number: IT-PFIZER INC-2018131661

PATIENT
  Sex: Male

DRUGS (1)
  1. SUTENT [Suspect]
     Active Substance: SUNITINIB MALATE
     Indication: RENAL CELL CARCINOMA
     Dosage: UNK
     Dates: end: 20161117

REACTIONS (1)
  - Death [Fatal]

NARRATIVE: CASE EVENT DATE: 20170801
